FAERS Safety Report 17595295 (Version 3)
Quarter: 2021Q3

REPORT INFORMATION
  Report Type: Spontaneous
  Country: US (occurrence: US)
  Receive Date: 20200328
  Receipt Date: 20210727
  Transmission Date: 20211014
  Serious: No
  Sender: FDA-Public Use
  Company Number: US-ALEXION PHARMACEUTICALS INC.-A202004086

PATIENT
  Sex: Male

DRUGS (2)
  1. STRENSIQ [Suspect]
     Active Substance: ASFOTASE ALFA
     Indication: HYPOPHOSPHATASIA
     Dosage: 193 ML, TIW
     Route: 058
     Dates: start: 20191115
  2. STRENSIQ [Suspect]
     Active Substance: ASFOTASE ALFA
     Dosage: 193 ML, TIW
     Route: 030
     Dates: start: 201911

REACTIONS (3)
  - Pain [Unknown]
  - Emotional distress [Recovered/Resolved]
  - Weight decreased [Unknown]

NARRATIVE: CASE EVENT DATE: 2019
